FAERS Safety Report 9072043 (Version 1)
Quarter: 2013Q1

REPORT INFORMATION
  Report Type: Spontaneous
  Country: US (occurrence: US)
  Receive Date: 20130206
  Receipt Date: 20130206
  Transmission Date: 20140127
  Serious: No
  Sender: FDA-Public Use
  Company Number: US-ALLERGAN-1215485US

PATIENT
  Sex: Female

DRUGS (5)
  1. RESTASIS? [Suspect]
     Indication: DRY EYE
     Dosage: 2 GTT, BID
     Route: 047
  2. CRESTOR                            /01588601/ [Concomitant]
     Indication: BLOOD CHOLESTEROL INCREASED
     Dosage: 5 MG, QPM
     Route: 048
  3. GLUCOSAMINE [Concomitant]
     Indication: SUPPLEMENTATION THERAPY
     Dosage: UNK
  4. FOLTX [Concomitant]
     Indication: SUPPLEMENTATION THERAPY
     Dosage: UNK
  5. CHONDROITIN [Concomitant]
     Indication: SUPPLEMENTATION THERAPY
     Dosage: UNK

REACTIONS (4)
  - Eye pruritus [Unknown]
  - Foreign body sensation in eyes [Unknown]
  - Foreign body sensation in eyes [Unknown]
  - Eye pruritus [Unknown]
